FAERS Safety Report 24921924 (Version 1)
Quarter: 2025Q1

REPORT INFORMATION
  Report Type: Spontaneous
  Country: GB (occurrence: GB)
  Receive Date: 20250204
  Receipt Date: 20250204
  Transmission Date: 20250408
  Serious: Yes (Life-Threatening, Hospitalization, Other)
  Sender: RANBAXY
  Company Number: GB-SUN PHARMACEUTICAL INDUSTRIES LTD-2025R1-491809

PATIENT
  Age: 17 Month

DRUGS (1)
  1. DIGOXIN [Suspect]
     Active Substance: DIGOXIN
     Indication: Enterovirus myocarditis
     Route: 065

REACTIONS (3)
  - Drug level increased [Unknown]
  - Toxicity to various agents [Unknown]
  - Ventricular extrasystoles [Unknown]
